FAERS Safety Report 18939705 (Version 1)
Quarter: 2021Q1

REPORT INFORMATION
  Report Type: Spontaneous
  Country: MM (occurrence: MM)
  Receive Date: 20210224
  Receipt Date: 20210224
  Transmission Date: 20210420
  Serious: Yes (Death, Hospitalization)
  Sender: FDA-Public Use
  Company Number: MM-JNJFOC-20210229192

PATIENT
  Age: 36 Year
  Sex: Male

DRUGS (26)
  1. LEVOFLOXACIN. [Suspect]
     Active Substance: LEVOFLOXACIN
     Indication: TUBERCULOSIS
     Route: 065
     Dates: start: 20200908, end: 20201011
  2. ETOPOSIDE. [Suspect]
     Active Substance: ETOPOSIDE
     Indication: TUBERCULOSIS
     Route: 065
     Dates: start: 20200908, end: 20200930
  3. PANTOPRAZOLE [Concomitant]
     Active Substance: PANTOPRAZOLE
     Route: 048
  4. FLUCONAZOLE. [Concomitant]
     Active Substance: FLUCONAZOLE
     Indication: OESOPHAGEAL CANDIDIASIS
     Route: 048
     Dates: start: 20201124, end: 20201208
  5. PYRIDOXINE [Concomitant]
     Active Substance: PYRIDOXINE
     Indication: PROPHYLAXIS
     Route: 048
     Dates: start: 20200908, end: 20201227
  6. PREDNISOLONE. [Concomitant]
     Active Substance: PREDNISOLONE
     Route: 048
     Dates: start: 20201208, end: 20201222
  7. LAMIVUDINE. [Concomitant]
     Active Substance: LAMIVUDINE
     Indication: HIV INFECTION
     Route: 065
     Dates: start: 20200916
  8. CYCLOSERINE. [Suspect]
     Active Substance: CYCLOSERINE
     Indication: TUBERCULOSIS
     Route: 065
     Dates: start: 20200908, end: 20201227
  9. AMOXICILLIN. [Concomitant]
     Active Substance: AMOXICILLIN
     Indication: HELICOBACTER INFECTION
     Route: 048
     Dates: start: 20201112, end: 20201122
  10. PREDNISOLONE. [Concomitant]
     Active Substance: PREDNISOLONE
     Indication: IMMUNE RECONSTITUTION INFLAMMATORY SYNDROME
     Route: 048
     Dates: start: 20201124, end: 20201208
  11. PREDNISOLONE. [Concomitant]
     Active Substance: PREDNISOLONE
     Route: 048
     Dates: start: 20201222, end: 20201227
  12. ETOPOSIDE. [Suspect]
     Active Substance: ETOPOSIDE
     Route: 065
     Dates: start: 20201019
  13. ETOPOSIDE. [Suspect]
     Active Substance: ETOPOSIDE
     Route: 065
     Dates: start: 20201223, end: 20201227
  14. PYRAZINAMIDE. [Suspect]
     Active Substance: PYRAZINAMIDE
     Route: 065
     Dates: start: 20201011
  15. LACTULOSE. [Concomitant]
     Active Substance: LACTULOSE
     Dosage: 10 CC
     Route: 065
  16. ZIDOVUDINE. [Concomitant]
     Active Substance: ZIDOVUDINE
     Indication: HIV INFECTION
     Route: 065
     Dates: start: 20200916
  17. BEDAQUILINE [Suspect]
     Active Substance: BEDAQUILINE
     Indication: TUBERCULOSIS
     Route: 048
     Dates: start: 20200908, end: 20201227
  18. ETOPOSIDE. [Suspect]
     Active Substance: ETOPOSIDE
     Route: 065
     Dates: start: 20201104, end: 20201123
  19. CEFIXIME. [Concomitant]
     Active Substance: CEFIXIME
     Route: 048
  20. METRONIDAZOLE. [Concomitant]
     Active Substance: METRONIDAZOLE
     Indication: HELICOBACTER INFECTION
     Route: 065
     Dates: start: 20201112, end: 20201122
  21. DOLUTEGRAVIR [Concomitant]
     Active Substance: DOLUTEGRAVIR
     Indication: HIV INFECTION
     Route: 065
     Dates: start: 20200916
  22. LEVOFLOXACIN. [Suspect]
     Active Substance: LEVOFLOXACIN
     Route: 065
     Dates: start: 20201011
  23. ETOPOSIDE. [Suspect]
     Active Substance: ETOPOSIDE
     Route: 065
     Dates: start: 20201005, end: 20201011
  24. PYRAZINAMIDE. [Suspect]
     Active Substance: PYRAZINAMIDE
     Indication: TUBERCULOSIS
     Route: 065
     Dates: start: 20200908, end: 20201011
  25. RELISPAS [Concomitant]
     Route: 065
  26. ALBENDAZOLE. [Concomitant]
     Active Substance: ALBENDAZOLE
     Route: 065

REACTIONS (1)
  - Duodenal perforation [Fatal]

NARRATIVE: CASE EVENT DATE: 20200916
